FAERS Safety Report 9276426 (Version 2)
Quarter: 2013Q2

REPORT INFORMATION
  Report Type: Report from Study
  Country: DE (occurrence: DE)
  Receive Date: 20130507
  Receipt Date: 20130514
  Transmission Date: 20140414
  Serious: Yes (Hospitalization)
  Sender: FDA-Public Use
  Company Number: DE-GLAXOSMITHKLINE-B0889380A

PATIENT
  Sex: Female

DRUGS (2)
  1. TOPOTECAN [Suspect]
     Indication: OVARIAN CANCER RECURRENT
     Route: 042
  2. BLINDED STUDY MEDICATION [Suspect]
     Indication: OVARIAN CANCER RECURRENT
     Route: 048

REACTIONS (1)
  - Ascites [Recovering/Resolving]
